FAERS Safety Report 11641605 (Version 1)
Quarter: 2015Q4

REPORT INFORMATION
  Report Type: Spontaneous
  Country: FR (occurrence: FR)
  Receive Date: 20151019
  Receipt Date: 20151019
  Transmission Date: 20160304
  Serious: Yes (Other)
  Sender: FDA-Public Use
  Company Number: FR-GE HEALTHCARE MEDICAL DIAGNOSTICS-OMPQ-PR-1510S-2446

PATIENT
  Age: 81 Year
  Sex: Male

DRUGS (16)
  1. AMOXICILLIN CLAVULANIC ACID [Suspect]
     Active Substance: AMOXICILLIN\CLAVULANIC ACID
     Indication: LUNG DISORDER
  2. SPECIAFOLDINE [Concomitant]
     Active Substance: FOLIC ACID
  3. AMOXICILLIN CLAVULANIC ACID [Suspect]
     Active Substance: AMOXICILLIN\CLAVULANIC ACID
     Indication: ANAEMIA
     Route: 048
     Dates: start: 20150918, end: 20150924
  4. CARDENSIEL [Concomitant]
     Active Substance: BISOPROLOL FUMARATE
  5. ATIVAN [Concomitant]
     Active Substance: LORAZEPAM
  6. FUMAFER [Concomitant]
     Active Substance: FERROUS FUMARATE
  7. ZYMAD [Concomitant]
     Active Substance: CHOLECALCIFEROL
  8. CRESTOR [Concomitant]
     Active Substance: ROSUVASTATIN CALCIUM
  9. INEXIUM [Concomitant]
     Active Substance: ESOMEPRAZOLE
  10. OMNIPAQUE [Suspect]
     Active Substance: IOHEXOL
     Indication: PRODUCT USED FOR UNKNOWN INDICATION
     Dosage: DOSE NOT REPORTED
     Route: 042
     Dates: start: 20150922, end: 20150922
  11. OMNIPAQUE [Suspect]
     Active Substance: IOHEXOL
     Indication: DIAGNOSTIC PROCEDURE
  12. ABILIFY [Concomitant]
     Active Substance: ARIPIPRAZOLE
  13. CORDARONE [Concomitant]
     Active Substance: AMIODARONE HYDROCHLORIDE
  14. KARDEGIC [Concomitant]
     Active Substance: ASPIRIN LYSINE
  15. LASILIX [Concomitant]
     Active Substance: FUROSEMIDE
  16. TOPALGIC [Concomitant]
     Active Substance: TRAMADOL

REACTIONS (3)
  - Pruritus [Recovering/Resolving]
  - Eosinophilia [Recovering/Resolving]
  - Rash maculo-papular [Recovering/Resolving]

NARRATIVE: CASE EVENT DATE: 20150923
